FAERS Safety Report 18721200 (Version 2)
Quarter: 2021Q1

REPORT INFORMATION
  Report Type: Spontaneous
  Country: GB (occurrence: GB)
  Receive Date: 20210109
  Receipt Date: 20210209
  Transmission Date: 20210419
  Serious: Yes (Life-Threatening, Hospitalization)
  Sender: FDA-Public Use
  Company Number: GB-ACCORD-214156

PATIENT
  Age: 18 Year
  Sex: Female
  Weight: 52.9 kg

DRUGS (1)
  1. SERTRALINE [Suspect]
     Active Substance: SERTRALINE HYDROCHLORIDE
     Indication: ANXIETY
     Route: 048
     Dates: start: 20201207, end: 20201213

REACTIONS (8)
  - Muscle spasms [Recovering/Resolving]
  - Presyncope [Recovering/Resolving]
  - Derealisation [Recovering/Resolving]
  - Lactation puerperal increased [Unknown]
  - Mydriasis [Recovering/Resolving]
  - Heart rate increased [Recovering/Resolving]
  - Hallucination [Recovering/Resolving]
  - Muscle tightness [Recovering/Resolving]

NARRATIVE: CASE EVENT DATE: 20201212
